FAERS Safety Report 8197052-2 (Version None)
Quarter: 2012Q1

REPORT INFORMATION
  Report Type: 
  Country: None (occurrence: None)
  Receive Date: 20120309
  Receipt Date: 20120215
  Transmission Date: 20120608
  Serious: Yes (Hospitalization, Other)
  Sender: FDA-Public Use
  Company Number: KR-UCBSA-020642

PATIENT
  Age: 47 Year
  Sex: Female
  Weight: 65 kg

DRUGS (14)
  1. METHYLPREDNISOLONE [Concomitant]
     Route: 048
     Dates: start: 20101031, end: 20101031
  2. ACECLOFENAC [Concomitant]
     Indication: PAIN
     Route: 048
     Dates: start: 20100222
  3. REBAMIPIDE [Concomitant]
     Indication: PROPHYLAXIS
     Route: 048
     Dates: start: 19991230
  4. CERTOLIZUMAB PEGOL [Suspect]
     Indication: RHEUMATOID ARTHRITIS
     Dosage: NBR OF DOSES: 3
     Route: 058
     Dates: start: 20100603
  5. METHOTREXATE [Concomitant]
     Indication: RHEUMATOID ARTHRITIS
     Route: 048
     Dates: start: 20100407, end: 20101024
  6. FEXOFENADINE [Concomitant]
     Indication: NASOPHARYNGITIS
     Route: 048
     Dates: start: 20101015, end: 20101019
  7. METHYLPREDNISOLONE [Concomitant]
     Indication: RHEUMATOID ARTHRITIS
     Route: 048
     Dates: start: 20100222, end: 20101025
  8. METHYLPREDNISOLONE [Concomitant]
     Route: 048
     Dates: start: 20101027, end: 20101030
  9. FOLIC ACID [Concomitant]
     Indication: PROPHYLAXIS
     Route: 048
     Dates: start: 19991218
  10. ADCAL [Concomitant]
     Indication: OSTEOPOROSIS
     Dosage: 1TAB BID
     Route: 048
     Dates: start: 20041025
  11. CERTOLIZUMAB PEGOL [Suspect]
     Route: 058
     Dates: end: 20101008
  12. METHYLPREDNISOLONE [Concomitant]
     Route: 048
     Dates: start: 20101026, end: 20101026
  13. METHYLPREDNISOLONE [Concomitant]
     Route: 048
     Dates: start: 20101101
  14. ACETAMINOPHEN [Concomitant]
     Indication: NASOPHARYNGITIS
     Route: 048
     Dates: start: 20101015, end: 20101019

REACTIONS (2)
  - TUBERCULOSIS [None]
  - MENINGITIS ASEPTIC [None]
